FAERS Safety Report 8415695-5 (Version None)
Quarter: 2012Q2

REPORT INFORMATION
  Report Type: 
  Country: None (occurrence: None)
  Receive Date: 20120606
  Receipt Date: 20120529
  Transmission Date: 20120825
  Serious: Yes (Hospitalization)
  Sender: FDA-Public Use
  Company Number: FI-SANOFI-AVENTIS-2012SA038727

PATIENT
  Age: 80 Year
  Sex: Male

DRUGS (12)
  1. PRIMASPAN [Concomitant]
     Indication: DRUG THERAPY
     Route: 048
  2. XALATAN [Concomitant]
     Indication: DRUG THERAPY
     Route: 047
  3. BISOPROLOL FUMARATE [Concomitant]
     Indication: DRUG THERAPY
     Route: 048
  4. ZOLADEX [Concomitant]
     Indication: PROPHYLAXIS
     Route: 058
     Dates: start: 20050825
  5. METFORMIN HYDROCHLORIDE [Concomitant]
     Indication: DRUG THERAPY
     Route: 048
  6. PREDNISONE [Suspect]
     Indication: PROSTATE CANCER METASTATIC
     Route: 048
     Dates: start: 20111110, end: 20120527
  7. LOSARTAN POTASSIUM [Concomitant]
     Indication: DRUG THERAPY
     Route: 048
  8. AMLODIPINE [Concomitant]
     Indication: DRUG THERAPY
     Route: 048
  9. DOCETAXEL [Suspect]
     Indication: PROSTATE CANCER METASTATIC
     Route: 042
     Dates: start: 20111110, end: 20111110
  10. DOCETAXEL [Suspect]
     Route: 042
     Dates: start: 20120516, end: 20120516
  11. ZOLT [Concomitant]
     Indication: DRUG THERAPY
     Route: 048
  12. TIMOLOL MALEATE [Concomitant]
     Indication: DRUG THERAPY
     Route: 047
     Dates: start: 20120412

REACTIONS (1)
  - CHOLECYSTITIS ACUTE [None]
